FAERS Safety Report 6546188-8 (Version None)
Quarter: 2010Q1

REPORT INFORMATION
  Report Type: 
  Country: None (occurrence: None)
  Receive Date: 20100119
  Receipt Date: 20100104
  Transmission Date: 20100710
  Serious: Yes (Hospitalization)
  Sender: FDA-Public Use
  Company Number: 2009AC000294

PATIENT
  Age: 70 Year
  Sex: Female

DRUGS (46)
  1. DIGOXIN [Suspect]
     Dosage: 0.25 MG;QD;PO
     Route: 048
     Dates: start: 20080225
  2. COUMADIN [Concomitant]
  3. ASPIRIN [Concomitant]
  4. CARTIA XT [Concomitant]
  5. CLONIDINE [Concomitant]
  6. HYDROCHLOROTHIAZIDE [Concomitant]
  7. VYTORIN [Concomitant]
  8. FISH OIL [Concomitant]
  9. THYROID TAB [Concomitant]
  10. PREDNISONE [Concomitant]
  11. NEURO B-12 [Concomitant]
  12. CALCIUM [Concomitant]
  13. AMBIEN [Concomitant]
  14. ULTRAM [Concomitant]
  15. COUMADIN [Concomitant]
  16. CILOSTAZOL [Concomitant]
  17. TOPROL-XL [Concomitant]
  18. CLONIDINE [Concomitant]
  19. HYZAAR [Concomitant]
  20. SIMVASTATIN [Concomitant]
  21. DOCUSATE [Concomitant]
  22. I-VITE [Concomitant]
  23. SYNTHROID [Concomitant]
  24. AMLODIPINE [Concomitant]
  25. SIMVASTATIN [Concomitant]
  26. HYZAAR [Concomitant]
  27. METOPROLOL [Concomitant]
  28. TRAMADOL [Concomitant]
  29. CILOSTAZOL [Concomitant]
  30. PREDNISONE [Concomitant]
  31. ZOLPIDEM [Concomitant]
  32. LIDODERM [Concomitant]
  33. WARFARIN [Concomitant]
  34. FAMVIR [Concomitant]
  35. ATIVAN [Concomitant]
  36. * NIFEDICAL [Concomitant]
  37. CELEBREX [Concomitant]
  38. CYANOCOBALAMIN [Concomitant]
  39. CEPHALEXIN [Concomitant]
  40. HYDROCODONE [Concomitant]
  41. PREMARIN [Concomitant]
  42. FLUCONAZOLE [Concomitant]
  43. METRONIDAZOLE [Concomitant]
  44. MOMETASONE FUROATE [Concomitant]
  45. HYDROXYZINE [Concomitant]
  46. JANTOVEN [Concomitant]

REACTIONS (13)
  - ACTINIC KERATOSIS [None]
  - AUTONOMIC NERVOUS SYSTEM IMBALANCE [None]
  - BASAL CELL CARCINOMA [None]
  - CARDIAC FLUTTER [None]
  - ECONOMIC PROBLEM [None]
  - HERPES ZOSTER [None]
  - INJURY [None]
  - LENTIGO [None]
  - NEOPLASM [None]
  - RASH [None]
  - THERAPEUTIC AGENT TOXICITY [None]
  - TRANSIENT ISCHAEMIC ATTACK [None]
  - VASCULAR RUPTURE [None]
